FAERS Safety Report 5033927-0 (Version None)
Quarter: 2006Q2

REPORT INFORMATION
  Report Type: 
  Country: None (occurrence: None)
  Receive Date: 20060623
  Receipt Date: 20050628
  Transmission Date: 20061013
  Serious: Yes (Hospitalization)
  Sender: FDA-Public Use
  Company Number: DEWYE778928JUN05

PATIENT
  Sex: Female

DRUGS (4)
  1. ENBREL [Suspect]
     Indication: RHEUMATOID ARTHRITIS
     Route: 058
     Dates: start: 20030101
  2. TEMAZEPAM [Suspect]
     Indication: PAIN
     Dosage: UNKNOWN
     Route: 065
  3. TEMAZEPAM [Suspect]
     Indication: AGITATION
  4. QUENSYL [Concomitant]
     Dosage: UNKNOWN
     Route: 048

REACTIONS (1)
  - CUTANEOUS LUPUS ERYTHEMATOSUS [None]
